FAERS Safety Report 12120476 (Version 1)
Quarter: 2016Q1

REPORT INFORMATION
  Report Type: Spontaneous
  Country: IT (occurrence: IT)
  Receive Date: 20160226
  Receipt Date: 20160226
  Transmission Date: 20160526
  Serious: Yes (Life-Threatening, Other)
  Sender: FDA-Public Use
  Company Number: IT-B.I. PHARMACEUTICALS,INC./RIDGEFIELD-2016-BI-11364IT

PATIENT
  Age: 76 Year
  Sex: Female
  Weight: 60 kg

DRUGS (1)
  1. PRADAXA [Suspect]
     Active Substance: DABIGATRAN ETEXILATE MESYLATE
     Indication: ATRIAL FIBRILLATION
     Dosage: 220 MG
     Route: 048
     Dates: start: 20160101, end: 20160222

REACTIONS (3)
  - Intracardiac thrombus [Unknown]
  - Atrial thrombosis [Unknown]
  - Ischaemia [Recovered/Resolved]

NARRATIVE: CASE EVENT DATE: 20160222
